FAERS Safety Report 6434781-2 (Version None)
Quarter: 2009Q4

REPORT INFORMATION
  Report Type: 
  Country: None (occurrence: None)
  Receive Date: 20091110
  Receipt Date: 20091103
  Transmission Date: 20100525
  Serious: Yes (Hospitalization, Other)
  Sender: FDA-Public Use
  Company Number: BR-PFIZER INC-2009252034

PATIENT
  Age: 30 Year
  Sex: Male
  Weight: 83 kg

DRUGS (2)
  1. CELEBRA [Suspect]
     Indication: MYALGIA
     Dosage: UNK
     Route: 048
     Dates: start: 20090806
  2. CYCLOBENZAPRINE HYDROCHLORIDE [Concomitant]
     Dosage: UNK

REACTIONS (7)
  - BLOOD PRESSURE INCREASED [None]
  - DYSARTHRIA [None]
  - FORMICATION [None]
  - HALLUCINATION [None]
  - HEADACHE [None]
  - ILLUSION [None]
  - VERTIGO [None]
